FAERS Safety Report 16467306 (Version 1)
Quarter: 2019Q2

REPORT INFORMATION
  Report Type: Spontaneous
  Country: US (occurrence: US)
  Receive Date: 20190624
  Receipt Date: 20190624
  Transmission Date: 20190711
  Serious: Yes (Other)
  Sender: FDA-Public Use
  Company Number: US-CELGENEUS-USA-20190605207

PATIENT
  Age: 76 Year
  Sex: Male

DRUGS (1)
  1. REVLIMID [Suspect]
     Active Substance: LENALIDOMIDE
     Indication: PLASMA CELL MYELOMA
     Dosage: 10 MILLIGRAM
     Route: 048
     Dates: start: 201904

REACTIONS (7)
  - Listless [Unknown]
  - Syncope [Unknown]
  - Blood immunoglobulin A increased [Unknown]
  - Eye injury [Unknown]
  - Unevaluable event [Unknown]
  - Rash generalised [Unknown]
  - Fall [Unknown]

NARRATIVE: CASE EVENT DATE: 20190612
